FAERS Safety Report 7558868-6 (Version None)
Quarter: 2011Q2

REPORT INFORMATION
  Report Type: 
  Country: None (occurrence: None)
  Receive Date: 20110525
  Receipt Date: 20110214
  Transmission Date: 20111010
  Serious: No
  Sender: FDA-Public Use
  Company Number: 323338

PATIENT
  Sex: Female
  Weight: 107.5 kg

DRUGS (1)
  1. VICTOZA [Suspect]
     Indication: TYPE 2 DIABETES MELLITUS
     Dosage: SUBCUTANEOUS
     Route: 058
     Dates: start: 20110204, end: 20110211

REACTIONS (3)
  - MALAISE [None]
  - LETHARGY [None]
  - DIZZINESS [None]
